FAERS Safety Report 7472486-X (Version None)
Quarter: 2011Q2

REPORT INFORMATION
  Report Type: 
  Country: None (occurrence: None)
  Receive Date: 20110511
  Receipt Date: 20110329
  Transmission Date: 20111010
  Serious: Yes (Other)
  Sender: FDA-Public Use
  Company Number: US-BAYER-201016337NA

PATIENT
  Age: 51 Year
  Sex: Female
  Weight: 104 kg

DRUGS (3)
  1. NAPROSYN [Concomitant]
  2. YASMIN [Suspect]
     Dosage: UNK UNK, UNK
     Route: 048
     Dates: start: 20071201, end: 20080201
  3. YAZ [Suspect]
     Dosage: UNK UNK, UNK
     Route: 048
     Dates: start: 20080201, end: 20080301

REACTIONS (1)
  - DEEP VEIN THROMBOSIS [None]
